FAERS Safety Report 16550286 (Version 1)
Quarter: 2019Q3

REPORT INFORMATION
  Report Type: Spontaneous
  Country: US (occurrence: US)
  Receive Date: 20190528
  Receipt Date: 20190528
  Transmission Date: 20191004
  Serious: No
  Sender: FDA-Public Use
  Company Number: None

PATIENT
  Age: 78 Year
  Sex: Female

DRUGS (4)
  1. FASLODEX [Concomitant]
     Active Substance: FULVESTRANT
  2. IBRANDRONATE [Concomitant]
  3. XARELTO [Concomitant]
     Active Substance: RIVAROXABAN
  4. IBRANCE [Suspect]
     Active Substance: PALBOCICLIB
     Indication: BREAST CANCER
     Route: 048
     Dates: start: 201904, end: 20190520

REACTIONS (1)
  - Blood test abnormal [None]

NARRATIVE: CASE EVENT DATE: 20190528
